FAERS Safety Report 16562009 (Version 1)
Quarter: 2019Q3

REPORT INFORMATION
  Report Type: Spontaneous
  Country: FR (occurrence: FR)
  Receive Date: 20190711
  Receipt Date: 20190711
  Transmission Date: 20191004
  Serious: Yes (Hospitalization, Disabling)
  Sender: FDA-Public Use
  Company Number: FR-MYLANLABS-2019M1063684

PATIENT
  Age: 81 Year
  Sex: Female

DRUGS (29)
  1. CORDARONE [Suspect]
     Active Substance: AMIODARONE HYDROCHLORIDE
     Indication: PRODUCT USED FOR UNKNOWN INDICATION
     Dosage: UNK
     Route: 065
     Dates: start: 20170810, end: 201802
  2. DULOXETINE. [Concomitant]
     Active Substance: DULOXETINE
     Dosage: 2 DF, QD, 2 UNITS DAILY
     Route: 065
     Dates: start: 20170803
  3. DEBRIDAT                           /00465201/ [Concomitant]
     Active Substance: TRIMEBUTINE MALEATE
     Dosage: UNK
     Route: 065
  4. LASILIX                            /00032601/ [Concomitant]
     Active Substance: FUROSEMIDE
     Dosage: 1 / 4UNIT ON MORNING
     Route: 065
     Dates: start: 201707
  5. LASILIX                            /00032601/ [Concomitant]
     Active Substance: FUROSEMIDE
     Dosage: 1 DF, QD, 1 UNIT ON MORNING
     Route: 065
     Dates: start: 20170515, end: 201707
  6. DIFFU K [Concomitant]
     Active Substance: POTASSIUM CHLORIDE
     Dosage: 1 DF, BID, 1 UNIT TWICE DAILY
     Route: 065
     Dates: start: 201707
  7. LASILIX                            /00032601/ [Concomitant]
     Active Substance: FUROSEMIDE
     Dosage: 1 DF, QD, 1 UNIT ON MORNING
     Route: 065
     Dates: start: 2018
  8. FORLAX [Concomitant]
     Active Substance: POLYETHYLENE GLYCOL 4000
     Dosage: 1 DF, QD, 1UNIT DAILY
     Route: 065
     Dates: start: 20170803
  9. XARELTO [Concomitant]
     Active Substance: RIVAROXABAN
     Dosage: 1 DF, QD, 1 UNIT ON EVENING
     Route: 065
     Dates: start: 201707
  10. AMIODARONE [Suspect]
     Active Substance: AMIODARONE
     Indication: PRODUCT USED FOR UNKNOWN INDICATION
     Dosage: 1 UNIT ON MORNING EXCEPT SUNDAY  AND SATURDAY
     Route: 065
     Dates: start: 201801
  11. CYMBALTA [Concomitant]
     Active Substance: DULOXETINE HYDROCHLORIDE
     Dosage: UNK
     Route: 065
  12. ATENOLOL. [Concomitant]
     Active Substance: ATENOLOL
     Dosage: 1/ 2UNIT DAILY
     Route: 065
     Dates: start: 20170803
  13. MODOPAR [Concomitant]
     Active Substance: BENSERAZIDE HYDROCHLORIDE\LEVODOPA
     Dosage: 3 DF, QD, 3 UNITS DAILY
     Route: 065
     Dates: start: 2018
  14. XARELTO [Concomitant]
     Active Substance: RIVAROXABAN
     Dosage: 1 DF, QD, 1 UNIT ON EVENING
     Route: 065
     Dates: start: 20170515, end: 201707
  15. CORDARONE [Suspect]
     Active Substance: AMIODARONE HYDROCHLORIDE
     Dosage: 1 DF, QD, 1 UNIT ON MORNING
     Route: 065
  16. DIFFU K [Concomitant]
     Active Substance: POTASSIUM CHLORIDE
     Dosage: 2 DF, TID, 2 UNITS 3 TIMES  DAILY
     Route: 065
     Dates: start: 20170803
  17. STILNOX [Concomitant]
     Active Substance: ZOLPIDEM TARTRATE
     Dosage: 1 DF, QD, 1 UNIT DAILY
     Route: 065
  18. ATENOLOL. [Concomitant]
     Active Substance: ATENOLOL
     Dosage: 1 DF, QD, 1 UNIT DAILY
     Route: 065
     Dates: start: 201706
  19. CORDARONE [Suspect]
     Active Substance: AMIODARONE HYDROCHLORIDE
     Dosage: 2 DF, QD, 2 UNITS ON MORNING
     Route: 065
     Dates: start: 20170515
  20. ATENOLOL. [Concomitant]
     Active Substance: ATENOLOL
     Dosage: UNK
     Route: 065
  21. ALDACTONE [Concomitant]
     Active Substance: SPIRONOLACTONE
     Dosage: UNK UNK, QD, ? UNITS DAILY
     Route: 065
     Dates: start: 20170803
  22. LANSOPRAZOLE. [Concomitant]
     Active Substance: LANSOPRAZOLE
     Dosage: 1 DF, QD, 1UNIT DAILY
     Route: 065
     Dates: start: 2018
  23. LEVOTHYROX [Concomitant]
     Active Substance: LEVOTHYROXINE
     Dosage: 1 DF, QD, 1 UNIT DAILY
     Route: 065
     Dates: start: 2003
  24. CORDARONE [Suspect]
     Active Substance: AMIODARONE HYDROCHLORIDE
     Dosage: 1 UNIT ON MORNING EXCEPT SUNDAY
     Route: 065
     Dates: start: 201707
  25. CORDARONE [Suspect]
     Active Substance: AMIODARONE HYDROCHLORIDE
     Dosage: UNK
     Route: 065
  26. DIFFU K [Concomitant]
     Active Substance: POTASSIUM CHLORIDE
     Dosage: 1 DF, TID, 1 UNIT 3 TIMESDAILY
     Route: 065
     Dates: start: 201707, end: 201707
  27. MOVICOL-HALF [Concomitant]
     Dosage: 1 DF, BID, 1 UNIT  TWICE DAILY
     Route: 065
     Dates: start: 201706
  28. UVEDOSE [Concomitant]
     Active Substance: CHOLECALCIFEROL
     Dosage: UNK
     Route: 065
     Dates: start: 2018
  29. ZOLPIDEM [Concomitant]
     Active Substance: ZOLPIDEM TARTRATE
     Dosage: UNK
     Route: 065
     Dates: start: 2018

REACTIONS (15)
  - Eye haemorrhage [Unknown]
  - Papilloedema [Not Recovered/Not Resolved]
  - Atrial fibrillation [Unknown]
  - Pleural effusion [Unknown]
  - Lung infection [Unknown]
  - Tremor [Unknown]
  - Condition aggravated [Unknown]
  - Cardiac failure [Unknown]
  - Visual acuity reduced [Not Recovered/Not Resolved]
  - Optic neuritis [Not Recovered/Not Resolved]
  - Aortic valve calcification [Unknown]
  - Hypoxia [Unknown]
  - Hypercapnia [Unknown]
  - Depression [Unknown]
  - Dyspnoea [Unknown]

NARRATIVE: CASE EVENT DATE: 201706
